FAERS Safety Report 16322005 (Version 4)
Quarter: 2019Q4

REPORT INFORMATION
  Report Type: Report from Study
  Country: US (occurrence: US)
  Receive Date: 20190516
  Receipt Date: 20191023
  Transmission Date: 20200122
  Serious: Yes (Hospitalization)
  Sender: FDA-Public Use
  Company Number: US-ACTELION-A-NJ2018-165543

PATIENT
  Age: 78 Year
  Sex: Female
  Weight: 77.1 kg

DRUGS (5)
  1. ADCIRCA [Concomitant]
     Active Substance: TADALAFIL
  2. OPSUMIT [Suspect]
     Active Substance: MACITENTAN
     Indication: PULMONARY ARTERIAL HYPERTENSION
     Dosage: 10 MG, QD
     Route: 048
     Dates: start: 20170426
  3. REVATIO [Concomitant]
     Active Substance: SILDENAFIL CITRATE
  4. SOTALOL. [Suspect]
     Active Substance: SOTALOL
     Indication: PULMONARY HYPERTENSION
     Route: 065
  5. ELIQUIS [Concomitant]
     Active Substance: APIXABAN

REACTIONS (5)
  - Atrial fibrillation [Unknown]
  - Sciatica [Not Recovered/Not Resolved]
  - Dyspnoea [Unknown]
  - Hospitalisation [Unknown]
  - Unevaluable event [Unknown]

NARRATIVE: CASE EVENT DATE: 20190709
